FAERS Safety Report 4679713-2 (Version None)
Quarter: 2005Q2

REPORT INFORMATION
  Report Type: 
  Country: None (occurrence: None)
  Receive Date: 20050531
  Receipt Date: 20050519
  Transmission Date: 20051028
  Serious: Yes (Life-Threatening, Other)
  Sender: FDA-Public Use
  Company Number: 2005-05-1476

PATIENT
  Age: 46 Year
  Sex: Female

DRUGS (5)
  1. INTRON A [Suspect]
     Indication: MALIGNANT MELANOMA
     Dosage: SUBCUTANEOUS
     Route: 058
     Dates: start: 19980401, end: 19980724
  2. TYLENOL (CAPLET) [Concomitant]
  3. IMODIUM [Concomitant]
  4. BENADRYL [Concomitant]
  5. PAXIL [Concomitant]

REACTIONS (6)
  - BRAIN NEOPLASM [None]
  - DEPRESSED MOOD [None]
  - MALIGNANT MELANOMA [None]
  - MALIGNANT NEOPLASM PROGRESSION [None]
  - NEUROTOXICITY [None]
  - SUICIDAL IDEATION [None]
